FAERS Safety Report 10141878 (Version 1)
Quarter: 2014Q2

REPORT INFORMATION
  Report Type: Report from Study
  Country: US (occurrence: US)
  Receive Date: 20140429
  Receipt Date: 20140429
  Transmission Date: 20141212
  Serious: Yes (Hospitalization)
  Sender: FDA-Public Use
  Company Number: US-EXELIXIS-XL18414004224

PATIENT
  Sex: Female

DRUGS (2)
  1. XL184 [Suspect]
     Indication: MALIGNANT MELANOMA
     Dosage: 40 MG, QD
     Route: 048
  2. VEMURAFENIB [Suspect]
     Indication: MALIGNANT MELANOMA
     Dosage: 960 MG, BID

REACTIONS (1)
  - Erythema multiforme [Recovering/Resolving]
